FAERS Safety Report 19898972 (Version 1)
Quarter: 2021Q3

REPORT INFORMATION
  Report Type: Spontaneous
  Country: US (occurrence: US)
  Receive Date: 20210930
  Receipt Date: 20210930
  Transmission Date: 20211014
  Serious: Yes (Hospitalization)
  Sender: FDA-Public Use
  Company Number: US-JNJFOC-20210936029

PATIENT
  Age: 33 Year
  Sex: Male
  Weight: 76 kg

DRUGS (3)
  1. DILANTIN [Concomitant]
     Active Substance: PHENYTOIN
     Indication: SEIZURE PROPHYLAXIS
     Dosage: }12
     Route: 065
  2. PARACETAMOL [Suspect]
     Active Substance: ACETAMINOPHEN
     Indication: SUICIDE ATTEMPT
     Dosage: TOTAL DOSE 50000 MG (100X500 MG)
     Route: 048
     Dates: start: 20010409, end: 20010409
  3. DILANTIN [Suspect]
     Active Substance: PHENYTOIN
     Indication: SEIZURE PROPHYLAXIS
     Route: 065
     Dates: end: 20010409

REACTIONS (11)
  - Blood pressure increased [Recovered/Resolved]
  - PCO2 decreased [Recovered/Resolved]
  - Amylase increased [Recovered/Resolved]
  - Blood glucose increased [Recovered/Resolved]
  - PO2 increased [Recovered/Resolved]
  - Chest X-ray abnormal [Recovered/Resolved]
  - Acute hepatic failure [Recovered/Resolved]
  - Intentional overdose [Recovered/Resolved]
  - Acute kidney injury [Recovered/Resolved]
  - White blood cell count increased [Recovered/Resolved]
  - Suicide attempt [Recovered/Resolved]

NARRATIVE: CASE EVENT DATE: 20010411
